FAERS Safety Report 22987333 (Version 3)
Quarter: 2024Q1

REPORT INFORMATION
  Report Type: Spontaneous
  Country: US (occurrence: US)
  Receive Date: 20230926
  Receipt Date: 20240326
  Transmission Date: 20240410
  Serious: No
  Sender: FDA-Public Use
  Company Number: US-SA-SAC20230920000666

PATIENT
  Sex: Female

DRUGS (1)
  1. DUPIXENT [Suspect]
     Active Substance: DUPILUMAB
     Indication: Dermatitis atopic
     Dosage: 300 MG, QOW (1 PEN EVERY 14 DAYS)
     Route: 058

REACTIONS (4)
  - Injection site irritation [Not Recovered/Not Resolved]
  - Injection site urticaria [Unknown]
  - Injection site erythema [Unknown]
  - Injection site bruising [Unknown]
